FAERS Safety Report 11792402 (Version 2)
Quarter: 2016Q3

REPORT INFORMATION
  Report Type: Report from Study
  Country: US (occurrence: US)
  Receive Date: 20151202
  Receipt Date: 20160913
  Transmission Date: 20161109
  Serious: Yes (Death, Life-Threatening)
  Sender: FDA-Public Use
  Company Number: US-ROCHE-1670453

PATIENT
  Age: 57 Year
  Sex: Female
  Weight: 66.2 kg

DRUGS (6)
  1. TEMSIROLIMUS [Suspect]
     Active Substance: TEMSIROLIMUS
     Indication: HEPATOCELLULAR CARCINOMA
  2. BEVACIZUMAB [Suspect]
     Active Substance: BEVACIZUMAB
     Indication: OVARIAN CANCER
     Dosage: OVER 30 TO 90 MINUTES ON DAYS 1 AND 15 (1324 MG)
     Route: 042
     Dates: start: 20091125, end: 20091209
  3. BEVACIZUMAB [Suspect]
     Active Substance: BEVACIZUMAB
     Indication: HEPATOCELLULAR CARCINOMA
  4. BEVACIZUMAB [Suspect]
     Active Substance: BEVACIZUMAB
     Indication: MALIGNANT NEOPLASM OF ISLETS OF LANGERHANS
  5. TEMSIROLIMUS [Suspect]
     Active Substance: TEMSIROLIMUS
     Indication: HEPATOCELLULAR CARCINOMA
  6. TEMSIROLIMUS [Suspect]
     Active Substance: TEMSIROLIMUS
     Indication: OVARIAN CANCER
     Dosage: ON DAYS 1,8,15,22
     Route: 042
     Dates: start: 20091125, end: 20091209

REACTIONS (2)
  - Death [Fatal]
  - Stevens-Johnson syndrome [Unknown]

NARRATIVE: CASE EVENT DATE: 20091213
